FAERS Safety Report 13340187 (Version 1)
Quarter: 2017Q1

REPORT INFORMATION
  Report Type: Report from Study
  Country: US (occurrence: US)
  Receive Date: 20170316
  Receipt Date: 20170316
  Transmission Date: 20170428
  Serious: Yes (Hospitalization)
  Sender: FDA-Public Use
  Company Number: US-ASTRAZENECA-2017SE27623

PATIENT
  Age: 76 Year
  Sex: Male

DRUGS (6)
  1. ATORVASTATIN [Concomitant]
     Active Substance: ATORVASTATIN
     Route: 048
  2. ASPIRIN. [Concomitant]
     Active Substance: ASPIRIN
     Route: 048
  3. MONTELUKAST [Concomitant]
     Active Substance: MONTELUKAST SODIUM
  4. METOPROLOL. [Suspect]
     Active Substance: METOPROLOL
     Dosage: UNKNOWN
     Route: 048
  5. BREO ELLIPTA [Concomitant]
     Active Substance: FLUTICASONE FUROATE\VILANTEROL TRIFENATATE
     Dosage: 100-25 MCG 1 PUFF DAILY
     Route: 055
     Dates: start: 20160815
  6. DALIRESP [Suspect]
     Active Substance: ROFLUMILAST
     Route: 048
     Dates: start: 20160815

REACTIONS (4)
  - Dyspnoea [Unknown]
  - Chest pain [Unknown]
  - Troponin increased [Unknown]
  - Atelectasis [Unknown]
